FAERS Safety Report 5132631-8 (Version None)
Quarter: 2006Q4

REPORT INFORMATION
  Report Type: 
  Country: None (occurrence: None)
  Receive Date: 20061017
  Receipt Date: 20061002
  Transmission Date: 20070319
  Serious: Yes (Other)
  Sender: FDA-Public Use
  Company Number: GB200610000342

PATIENT
  Age: 61 Year
  Weight: 65 kg

DRUGS (4)
  1. ZYPREXA [Suspect]
     Indication: AGITATION
     Dosage: 5 MG, INTRAMUSCULAR
     Route: 030
     Dates: start: 20060916, end: 20060916
  2. ASPIRIN [Concomitant]
  3. BENDROFLUAZIDE (BENDROFLUMETHIAZIDE) [Concomitant]
  4. RAMIPRIL [Concomitant]

REACTIONS (5)
  - BLOOD CREATININE INCREASED [None]
  - BLOOD POTASSIUM DECREASED [None]
  - BLOOD SODIUM DECREASED [None]
  - NEUROLEPTIC MALIGNANT SYNDROME [None]
  - TREMOR [None]
